APPROVED DRUG PRODUCT: BACITRACIN-NEOMYCIN-POLYMYXIN W/ HYDROCORTISONE ACETATE
Active Ingredient: BACITRACIN; HYDROCORTISONE ACETATE; NEOMYCIN SULFATE; POLYMYXIN B SULFATE
Strength: 400 UNITS/GM;1%;EQ 3.5MG BASE/GM;10,000 UNITS/GM
Dosage Form/Route: OINTMENT;OPHTHALMIC
Application: A060731 | Product #002
Applicant: ALTANA INC
Approved: Approved Prior to Jan 1, 1982 | RLD: No | RS: No | Type: DISCN